FAERS Safety Report 16240046 (Version 1)
Quarter: 2019Q2

REPORT INFORMATION
  Report Type: Spontaneous
  Country: US (occurrence: US)
  Receive Date: 20190425
  Receipt Date: 20190425
  Transmission Date: 20190711
  Serious: No
  Sender: FDA-Public Use
  Company Number: US-BAYER-2019-084618

PATIENT
  Age: 79 Year
  Sex: Male
  Weight: 82 kg

DRUGS (2)
  1. CLARITIN [Suspect]
     Active Substance: LORATADINE
     Indication: HYPERSENSITIVITY
     Dosage: ACCORDING TO LABEL
     Route: 048
     Dates: start: 20190424
  2. CLARITIN [Suspect]
     Active Substance: LORATADINE
     Indication: NASOPHARYNGITIS

REACTIONS (2)
  - Expired product administered [Unknown]
  - Circumstance or information capable of leading to medication error [Unknown]
